FAERS Safety Report 8309112 (Version 2)
Quarter: 2013Q1

REPORT INFORMATION
  Report Type: Spontaneous
  Country: US (occurrence: US)
  Receive Date: 20111222
  Receipt Date: 20130311
  Transmission Date: 20140127
  Serious: Yes (Life-Threatening, Other)
  Sender: FDA-Public Use
  Company Number: US-RB-035485-11

PATIENT
  Age: 1 Day
  Sex: Male

DRUGS (8)
  1. SUBOXONE FILM [Suspect]
     Indication: DRUG DEPENDENCE
     Dosage: SUBOXONE FILM
     Route: 064
     Dates: start: 20101007, end: 20110501
  2. PHENERGAN [Suspect]
     Indication: NAUSEA
     Dosage: 20 MG AS NEEDED
     Route: 064
  3. ADDERALL [Suspect]
     Indication: ATTENTION DEFICIT/HYPERACTIVITY DISORDER
     Route: 064
     Dates: start: 20101207, end: 20110501
  4. ZOFRAN [Suspect]
     Indication: NAUSEA
     Route: 064
  5. ZOFRAN [Suspect]
     Indication: VOMITING
     Route: 064
  6. CYMBALTA [Suspect]
     Indication: DEPRESSION
     Route: 064
     Dates: start: 20101207, end: 20110501
  7. VISTARIL [Suspect]
     Indication: ANXIETY
     Route: 064
     Dates: start: 20101207, end: 20110501
  8. NICOTINE [Suspect]
     Indication: PRODUCT USED FOR UNKNOWN INDICATION
     Dosage: DOSING DETAILS UNKNOWN
     Route: 064

REACTIONS (2)
  - Foetal exposure during pregnancy [Recovered/Resolved]
  - Pneumothorax [Unknown]
